FAERS Safety Report 7801293-0 (Version None)
Quarter: 2011Q4

REPORT INFORMATION
  Report Type: 
  Country: None (occurrence: None)
  Receive Date: 20111007
  Receipt Date: 20100111
  Transmission Date: 20120403
  Serious: No
  Sender: FDA-Public Use
  Company Number: 2010BI003291

PATIENT
  Sex: Female

DRUGS (2)
  1. TYSABRI [Suspect]
     Indication: MULTIPLE SCLEROSIS
     Route: 042
     Dates: start: 20090914, end: 20110825
  2. LITHIUM [Concomitant]
     Indication: BIPOLAR DISORDER

REACTIONS (9)
  - MEMORY IMPAIRMENT [None]
  - ROTATOR CUFF SYNDROME [None]
  - STRESS [None]
  - ARTHROPATHY [None]
  - COGNITIVE DISORDER [None]
  - FATIGUE [None]
  - OSTEOPENIA [None]
  - MUSCULOSKELETAL PAIN [None]
  - ARTHRALGIA [None]
